FAERS Safety Report 9168820 (Version 1)
Quarter: 2013Q1

REPORT INFORMATION
  Report Type: Spontaneous
  Country: None (occurrence: None)
  Receive Date: 20130305
  Receipt Date: 20130305
  Transmission Date: 20140127
  Serious: Yes (Other)
  Sender: FDA-Public Use
  Company Number: 2013-038

PATIENT
  Age: 45 Year
  Sex: Female
  Weight: 130 kg

DRUGS (4)
  1. CEPHALEXIN [Suspect]
     Route: 048
     Dates: start: 20130111, end: 201301
  2. CODEINE PHOSPHATE (NO PREF. NAME) [Concomitant]
  3. PARACETAMOL (NO PREF. NAME) [Concomitant]
  4. DESOGESTREL (CERAZETTE ?) [Concomitant]

REACTIONS (2)
  - Rosacea [None]
  - Condition aggravated [None]
